FAERS Safety Report 14302650 (Version 1)
Quarter: 2017Q4

REPORT INFORMATION
  Report Type: Spontaneous
  Country: US (occurrence: US)
  Receive Date: 20171219
  Receipt Date: 20171219
  Transmission Date: 20180321
  Serious: Yes (Other)
  Sender: FDA-Public Use
  Company Number: None

PATIENT
  Age: 93 Year
  Sex: Female
  Weight: 67.5 kg

DRUGS (1)
  1. ELIQUIS [Suspect]
     Active Substance: APIXABAN
     Indication: ANTICOAGULANT THERAPY
     Route: 048
     Dates: start: 20171201

REACTIONS (5)
  - Balance disorder [None]
  - Hallucination [None]
  - Fall [None]
  - Cognitive disorder [None]
  - Memory impairment [None]

NARRATIVE: CASE EVENT DATE: 20171216
